FAERS Safety Report 23555010 (Version 1)
Quarter: 2024Q1

REPORT INFORMATION
  Report Type: Spontaneous
  Country: US (occurrence: None)
  Receive Date: 20240222
  Receipt Date: 20240222
  Transmission Date: 20240410
  Serious: Yes (Hospitalization)
  Sender: FDA-Public Use
  Company Number: None

PATIENT
  Sex: Male

DRUGS (1)
  1. TOBRAMYCIN [Suspect]
     Active Substance: TOBRAMYCIN
     Indication: Sinusitis
     Dosage: FREQUENCY : TWICE A DAY;?OTHER ROUTE : INHALATION ;?
     Route: 050
     Dates: start: 202310

REACTIONS (1)
  - Pneumonia [None]
